FAERS Safety Report 25664862 (Version 2)
Quarter: 2025Q3

REPORT INFORMATION
  Report Type: Spontaneous
  Country: MX (occurrence: MX)
  Receive Date: 20250811
  Receipt Date: 20250813
  Transmission Date: 20251021
  Serious: Yes (Death, Other)
  Sender: PFIZER
  Company Number: MX-PFIZER INC-PV202500096378

PATIENT
  Age: 52 Year
  Sex: Male

DRUGS (7)
  1. CLINDAMYCIN PHOSPHATE [Suspect]
     Active Substance: CLINDAMYCIN PHOSPHATE
     Indication: Soft tissue infection
     Route: 042
  2. CLINDAMYCIN PHOSPHATE [Suspect]
     Active Substance: CLINDAMYCIN PHOSPHATE
     Indication: Septic shock
     Route: 042
  3. CEFTRIAXONE [Suspect]
     Active Substance: CEFTRIAXONE
     Indication: Soft tissue infection
     Route: 042
  4. CEFTRIAXONE [Suspect]
     Active Substance: CEFTRIAXONE
     Indication: Septic shock
  5. IMIPENEM [Suspect]
     Active Substance: IMIPENEM
     Indication: Soft tissue infection
     Route: 042
  6. IMIPENEM [Suspect]
     Active Substance: IMIPENEM
     Indication: Septic shock
  7. NOREPINEPHRINE [Concomitant]
     Active Substance: NOREPINEPHRINE

REACTIONS (2)
  - Off label use [Fatal]
  - Drug ineffective for unapproved indication [Fatal]
